FAERS Safety Report 6626342-7 (Version None)
Quarter: 2010Q1

REPORT INFORMATION
  Report Type: 
  Country: None (occurrence: None)
  Receive Date: 20100310
  Receipt Date: 20091218
  Transmission Date: 20100710
  Serious: Yes (Other)
  Sender: FDA-Public Use
  Company Number: IT-PFIZER INC-2009314299

PATIENT
  Sex: Female

DRUGS (5)
  1. VIRACEPT [Suspect]
     Dosage: 1750 MG, UNK
     Route: 065
     Dates: start: 20051204, end: 20070608
  2. ZIDOVUDINE [Suspect]
     Dosage: 600 MG, UNK
     Route: 065
     Dates: start: 20051204
  3. LAMIVUDINE [Suspect]
     Indication: ANTIRETROVIRAL THERAPY
     Dosage: 300 MG, UNK
     Route: 065
     Dates: start: 20051204
  4. LOPINAVIR [Suspect]
     Indication: ANTIRETROVIRAL THERAPY
     Dosage: 800 MG, UNK
     Route: 065
     Dates: start: 20070608
  5. RITONAVIR [Suspect]
     Indication: ANTIRETROVIRAL THERAPY
     Dosage: 200 MG, UNK
     Route: 065
     Dates: start: 20070608

REACTIONS (1)
  - INTRA-UTERINE DEATH [None]
